FAERS Safety Report 4539746-3 (Version None)
Quarter: 2004Q4

REPORT INFORMATION
  Report Type: 
  Country: None (occurrence: None)
  Receive Date: 20041222
  Receipt Date: 20041209
  Transmission Date: 20050328
  Serious: Yes (Hospitalization)
  Sender: FDA-Public Use
  Company Number: 2004235130US

PATIENT
  Age: 35 Year
  Sex: Female
  Weight: 136 kg

DRUGS (14)
  1. EPIRUBICIN HYDROCHLORIDE (EPIRUBICIN HYDROCHLORIDE) [Suspect]
     Indication: BREAST CANCER
     Dosage: 165 MG (CYCLE 3),
     Dates: start: 20040914, end: 20040914
  2. DOCETAXEL (DOCETAXEL) [Suspect]
     Indication: BREAST CANCER
     Dosage: 165 MG (CYCLE 3),
     Dates: start: 20040914, end: 20040914
  3. CYCLOPHOSPHAMIDE [Suspect]
     Indication: BREAST CANCER
     Dosage: 1100 MG (CYCLE 3),
     Dates: start: 20040914, end: 20040914
  4. ERYTHROPOIETIN (ERYTHROPOIETIN) [Concomitant]
  5. DOLASETRON MESILATE (DOLASETRON MESILATE) [Concomitant]
  6. DEXAMETHASONE [Concomitant]
  7. DIPHENHYDRAMINE HCL [Concomitant]
  8. CIMETIDINE HYDROCHLORIDE (CIMETIDINE HYDROCHLORIDE) [Concomitant]
  9. PROCHLORPERAZINE EDISYLATE [Concomitant]
  10. BUPROPION HYDROCHLORIDE [Concomitant]
  11. PROPACET 100 [Concomitant]
  12. POTASSIUM CHLORIDE [Concomitant]
  13. VENLAFAXINE HCL [Concomitant]
  14. LORAZEPAM [Concomitant]

REACTIONS (13)
  - ASTHENIA [None]
  - CATHETER RELATED INFECTION [None]
  - CHEST PAIN [None]
  - HYPOVOLAEMIA [None]
  - IMMUNOSUPPRESSION [None]
  - LEUKOCYTOSIS [None]
  - NAUSEA [None]
  - ORTHOSTATIC HYPOTENSION [None]
  - PNEUMONIA [None]
  - SEPSIS [None]
  - STAPHYLOCOCCAL INFECTION [None]
  - SYNCOPE [None]
  - VOMITING [None]
